FAERS Safety Report 8871784 (Version 1)
Quarter: 2012Q4

REPORT INFORMATION
  Report Type: 
  Country: US (occurrence: US)
  Receive Date: 20121023
  Receipt Date: 20121023
  Transmission Date: 20130627
  Serious: No
  Sender: FDA-Public Use
  Company Number: US-ASTELLAS-2012US006974

PATIENT
  Age: 67 Year
  Sex: Male
  Weight: 109 kg

DRUGS (9)
  1. PROGRAF [Suspect]
     Indication: RENAL TRANSPLANT
     Dosage: 1 mg, bid
     Route: 048
     Dates: start: 20050228
  2. MYFORTIC [Concomitant]
     Indication: RENAL TRANSPLANT
     Dosage: 180 mg, bid
     Route: 048
     Dates: start: 20050228
  3. PREDNISONE [Concomitant]
     Indication: RENAL TRANSPLANT
     Dosage: 5 mg, UID/QD
     Route: 048
     Dates: start: 20050228
  4. ATENOLOL [Concomitant]
     Indication: BLOOD PRESSURE
     Dosage: 100 mg, UID/QD
     Route: 048
     Dates: start: 20050301
  5. GLIMEPIRIDE [Concomitant]
     Indication: DIABETES MELLITUS
     Dosage: 4 mg in the morning and 2 mg in the afternoon
     Route: 048
     Dates: start: 20050228
  6. NORVASC [Concomitant]
     Indication: BLOOD PRESSURE
     Dosage: 10 mg, UID/QD
     Route: 048
     Dates: start: 20050228
  7. LISINOPRIL [Concomitant]
     Indication: BLOOD PRESSURE
     Dosage: 5 mg, UID/QD
     Route: 048
     Dates: start: 20050228
  8. TRADJENTA [Concomitant]
     Indication: DIABETES MELLITUS
     Dosage: 5 mg, UID/QD
     Route: 048
     Dates: start: 20050228
  9. SIMVASTATIN [Concomitant]
     Indication: BLOOD CHOLESTEROL
     Dosage: 20 mg, UID/QD
     Route: 048
     Dates: start: 20050228

REACTIONS (3)
  - Diarrhoea [Unknown]
  - Tremor [Unknown]
  - Fatigue [Unknown]
